FAERS Safety Report 19662323 (Version 2)
Quarter: 2021Q4

REPORT INFORMATION
  Report Type: Report from Study
  Country: None (occurrence: US)
  Receive Date: 20210805
  Receipt Date: 20211216
  Transmission Date: 20220303
  Serious: Yes (Death, Hospitalization)
  Sender: FDA-Public Use
  Company Number: US-EAGLE PHARMACEUTICALS, INC.-US-2021EAG000141

PATIENT
  Sex: Male

DRUGS (4)
  1. BENDEKA [Suspect]
     Active Substance: BENDAMUSTINE HYDROCHLORIDE
     Indication: Diffuse large B-cell lymphoma
     Dosage: 181 MG, UNK (CYCLE 1)
     Route: 041
     Dates: start: 20210414
  2. BENDEKA [Suspect]
     Active Substance: BENDAMUSTINE HYDROCHLORIDE
     Dosage: 181 MG, UNK (CYCLE 2)
     Route: 041
     Dates: start: 20210607
  3. BENDEKA [Suspect]
     Active Substance: BENDAMUSTINE HYDROCHLORIDE
     Dosage: 181 MG, UNK (CYCLE 3)
     Route: 041
     Dates: start: 20210628
  4. UNSPECIFIED INGREDIENT [Suspect]
     Active Substance: UNSPECIFIED INGREDIENT
     Indication: Diffuse large B-cell lymphoma
     Dosage: UNK
     Route: 065
     Dates: start: 20210621

REACTIONS (2)
  - Cardiac arrest [Fatal]
  - Cytokine release syndrome [None]

NARRATIVE: CASE EVENT DATE: 20210101
